FAERS Safety Report 19984242 (Version 3)
Quarter: 2021Q4

REPORT INFORMATION
  Report Type: Spontaneous
  Country: US (occurrence: US)
  Receive Date: 20211022
  Receipt Date: 20211220
  Transmission Date: 20220303
  Serious: Yes (Hospitalization, Other)
  Sender: FDA-Public Use
  Company Number: US-ACCORD-243227

PATIENT
  Age: 28 Year
  Sex: Female

DRUGS (2)
  1. QUETIAPINE FUMARATE [Interacting]
     Active Substance: QUETIAPINE FUMARATE
     Indication: Bipolar I disorder
     Dosage: NIGHTLY, LONG-TERM STABLE DOSE  NIGHTLY, EXTENDED-RELEASE
  2. GRAPEFRUIT JUICE [Interacting]
     Active Substance: GRAPEFRUIT JUICE
     Indication: Detoxification
     Dosage: APPROXIMATELY 1 GALLON

REACTIONS (8)
  - Electrocardiogram QT prolonged [Recovered/Resolved]
  - Lactic acidosis [Recovered/Resolved]
  - Mental status changes [Recovered/Resolved]
  - Dystonia [Recovered/Resolved]
  - Drug interaction [Unknown]
  - Overdose [Unknown]
  - Tachycardia [Recovered/Resolved]
  - Food interaction [Unknown]
